FAERS Safety Report 21470693 (Version 1)
Quarter: 2022Q4

REPORT INFORMATION
  Report Type: Spontaneous
  Country: US (occurrence: US)
  Receive Date: 20221018
  Receipt Date: 20221018
  Transmission Date: 20230112
  Serious: No
  Sender: FDA-Public Use
  Company Number: US-BAUSCH-BL-2022-023184

PATIENT
  Age: 23 Year
  Sex: Female
  Weight: 56.750 kg

DRUGS (2)
  1. RELISTOR [Suspect]
     Active Substance: METHYLNALTREXONE BROMIDE
     Indication: Constipation
     Route: 065
  2. DILAUDID [Concomitant]
     Active Substance: HYDROMORPHONE HYDROCHLORIDE
     Indication: Product used for unknown indication
     Route: 065

REACTIONS (9)
  - Withdrawal syndrome [Unknown]
  - Condition aggravated [Unknown]
  - Depression [Unknown]
  - Pain [Unknown]
  - Chills [Unknown]
  - Hyperhidrosis [Unknown]
  - Tremor [Unknown]
  - Anxiety [Unknown]
  - Drug ineffective [Unknown]
